FAERS Safety Report 11551923 (Version 1)
Quarter: 2015Q3

REPORT INFORMATION
  Report Type: Spontaneous
  Country: US (occurrence: US)
  Receive Date: 20150903
  Receipt Date: 20150903
  Transmission Date: 20151125
  Serious: No
  Sender: FDA-Public Use
  Company Number: US-ELI_LILLY_AND_COMPANY-US201005006554

PATIENT
  Sex: Female

DRUGS (5)
  1. INSULIN REGULAR /01223201/ [Concomitant]
     Active Substance: INSULIN BEEF
  2. HUMALOG [Suspect]
     Active Substance: INSULIN LISPRO
     Indication: TYPE 2 DIABETES MELLITUS
  3. LANTUS [Concomitant]
     Active Substance: INSULIN GLARGINE
     Indication: TYPE 2 DIABETES MELLITUS
     Dosage: 20 U, DAILY (1/D)
  4. ACTOS /01460201/ [Concomitant]
     Route: 048
  5. AMARYL [Concomitant]
     Active Substance: GLIMEPIRIDE
     Route: 048

REACTIONS (2)
  - Blood glucose increased [Unknown]
  - Renal impairment [Unknown]
